FAERS Safety Report 5301333-7 (Version None)
Quarter: 2007Q2

REPORT INFORMATION
  Report Type: 
  Country: None (occurrence: None)
  Receive Date: 20070418
  Receipt Date: 20070409
  Transmission Date: 20071010
  Serious: Yes (Other)
  Sender: FDA-Public Use
  Company Number: US-PFIZER INC-2007028706

PATIENT
  Sex: Female
  Weight: 84.8 kg

DRUGS (5)
  1. MEDROXYPROGESTERONE ACETATE [Suspect]
     Indication: MENSTRUAL DISCOMFORT
     Dosage: FREQ:1 ST INJECTION
     Route: 030
     Dates: start: 20060101, end: 20060101
  2. MEDROXYPROGESTERONE ACETATE [Suspect]
     Dosage: FREQ:3RD INJECTION
     Route: 030
     Dates: start: 20070101, end: 20070101
  3. ADDERALL 10 [Suspect]
  4. TOPAMAX [Concomitant]
     Indication: MIGRAINE
  5. SINGULAIR ^DIECKMANN^ [Concomitant]

REACTIONS (3)
  - CONVULSION [None]
  - DYSARTHRIA [None]
  - MUSCLE TWITCHING [None]
